FAERS Safety Report 9186546 (Version 3)
Quarter: 2013Q3

REPORT INFORMATION
  Report Type: Report from Study
  Country: CA (occurrence: CA)
  Receive Date: 20130325
  Receipt Date: 20130913
  Transmission Date: 20140515
  Serious: Yes (Other)
  Sender: FDA-Public Use
  Company Number: CA-ROCHE-1118415

PATIENT
  Age: 76 Year
  Sex: Female
  Weight: 68 kg

DRUGS (16)
  1. RITUXAN [Suspect]
     Indication: RHEUMATOID ARTHRITIS
     Route: 042
     Dates: start: 20100218
  2. RITUXAN [Suspect]
     Route: 065
     Dates: start: 20130320
  3. IMODIUM [Concomitant]
  4. NIZATIDINE [Concomitant]
  5. FOLIC ACID [Concomitant]
  6. LEFLUNOMIDE [Concomitant]
  7. CALTRATE [Concomitant]
  8. ASA [Concomitant]
  9. LANTUS [Concomitant]
  10. DIPHENHYDRAMINE HCL [Concomitant]
     Indication: PREMEDICATION
     Route: 048
     Dates: start: 20120904, end: 20120904
  11. DIPHENHYDRAMINE HCL [Concomitant]
     Route: 048
     Dates: start: 20100218
  12. ACETAMINOPHEN [Concomitant]
     Indication: PREMEDICATION
     Route: 065
     Dates: start: 20120904, end: 20120904
  13. ACETAMINOPHEN [Concomitant]
     Route: 048
     Dates: start: 20100218
  14. METFORMIN [Concomitant]
  15. METHYLPREDNISOLONE [Concomitant]
     Indication: PREMEDICATION
     Route: 042
     Dates: start: 20120904, end: 20120904
  16. METHYLPREDNISOLONE [Concomitant]
     Route: 042
     Dates: start: 20100218

REACTIONS (6)
  - Blood pressure increased [Recovered/Resolved]
  - Heart rate increased [Not Recovered/Not Resolved]
  - Blood glucose increased [Unknown]
  - Infusion related reaction [Not Recovered/Not Resolved]
  - Eye infection [Not Recovered/Not Resolved]
  - Blood test abnormal [Unknown]
